FAERS Safety Report 9944758 (Version 1)
Quarter: 2014Q1

REPORT INFORMATION
  Report Type: Spontaneous
  Country: US (occurrence: US)
  Receive Date: 20140303
  Receipt Date: 20140303
  Transmission Date: 20141002
  Serious: No
  Sender: FDA-Public Use
  Company Number: US-AMGEN-USASP2013072576

PATIENT
  Age: 45 Year
  Sex: Male
  Weight: 106.58 kg

DRUGS (5)
  1. ENBREL [Suspect]
     Indication: PRODUCT USED FOR UNKNOWN INDICATION
     Dosage: 50 MG/ML, WEEKLY
     Route: 058
  2. DICLOFENAC [Concomitant]
     Dosage: 100 MG, ER
  3. DICYCLOMINE                        /00068601/ [Concomitant]
     Dosage: 10 MG, UNK
  4. DOXEPIN HCL [Concomitant]
     Dosage: 100 MG, UNK
  5. TRAMADOL HCL [Concomitant]
     Dosage: 50 MG, UNK

REACTIONS (7)
  - Nausea [Unknown]
  - Dizziness [Unknown]
  - Amnesia [Unknown]
  - Confusional state [Unknown]
  - Balance disorder [Unknown]
  - Headache [Unknown]
  - Injection site reaction [Unknown]
